FAERS Safety Report 9411142 (Version 1)
Quarter: 2013Q3

REPORT INFORMATION
  Report Type: Report from Study
  Country: JP (occurrence: JP)
  Receive Date: 20130721
  Receipt Date: 20130721
  Transmission Date: 20140515
  Serious: Yes (Hospitalization, Other)
  Sender: FDA-Public Use
  Company Number: PHHY2011JP10742

PATIENT
  Age: 48 Year
  Sex: Male
  Weight: 66 kg

DRUGS (5)
  1. AFINITOR [Suspect]
     Indication: RENAL CELL CARCINOMA
     Dosage: 10 MG, DAILY
     Route: 048
     Dates: start: 20100520, end: 20100809
  2. AFINITOR [Suspect]
     Dosage: 10 MG, DAILY
     Route: 048
     Dates: start: 20100820, end: 20100930
  3. ZOMETA [Concomitant]
     Indication: METASTASES TO BONE
     Route: 041
     Dates: start: 20100325, end: 20101207
  4. NAIXAN [Concomitant]
     Indication: RENAL CELL CARCINOMA
     Dosage: 300 MG, UNK
     Route: 048
     Dates: start: 20100810, end: 20101014
  5. PRIMPERAN [Concomitant]
     Dosage: 3 DF, UNK
     Route: 048
     Dates: start: 20100813

REACTIONS (5)
  - Chills [Recovering/Resolving]
  - Nausea [Recovering/Resolving]
  - Decreased appetite [Recovering/Resolving]
  - Stomatitis [Recovering/Resolving]
  - Haemoglobin decreased [Unknown]
